FAERS Safety Report 4396500-3 (Version None)
Quarter: 2004Q3

REPORT INFORMATION
  Report Type: 
  Country: None (occurrence: None)
  Receive Date: 20040709
  Receipt Date: 20040623
  Transmission Date: 20050211
  Serious: Yes (Other)
  Sender: FDA-Public Use
  Company Number: JP-JNJFOC-20040701114

PATIENT
  Age: 45 Year
  Sex: Male

DRUGS (9)
  1. RISPERDAL [Suspect]
     Indication: SCHIZOPHRENIA
     Dosage: 6 MG, 1 IN 1 DAY, ORAL
     Route: 048
     Dates: start: 20020502
  2. FLUNITRAZEPAM (FLUNITRAZEPAM) [Concomitant]
  3. TEPRENONE (TEPRENONE) [Concomitant]
  4. LORAZEPAM [Concomitant]
  5. LANSOPRAZOLE [Concomitant]
  6. LITHIUM CARBONATE [Concomitant]
  7. LEVOMEPROMAZINE MALEATE (LEVOMEPROMAZINE MALEATE) [Concomitant]
  8. BIPERIDEN HYDROCHLORIDE TAB [Concomitant]
  9. FK (FK) [Concomitant]

REACTIONS (5)
  - BLOOD CREATINE PHOSPHOKINASE INCREASED [None]
  - EXCITABILITY [None]
  - HAEMOGLOBIN DECREASED [None]
  - IRRITABILITY [None]
  - UNEVALUABLE EVENT [None]
